FAERS Safety Report 17064355 (Version 1)
Quarter: 2019Q4

REPORT INFORMATION
  Report Type: Spontaneous
  Country: US (occurrence: US)
  Receive Date: 20191122
  Receipt Date: 20191122
  Transmission Date: 20200122
  Serious: No
  Sender: FDA-Public Use
  Company Number: US-BEH-2019109725

PATIENT
  Age: 64 Year
  Sex: Female

DRUGS (3)
  1. HIZENTRA [Suspect]
     Active Substance: HUMAN IMMUNOGLOBULIN G
     Dosage: UNK, 4 SITES HIP AREA
     Route: 058
     Dates: start: 20190915
  2. HIZENTRA [Suspect]
     Active Substance: HUMAN IMMUNOGLOBULIN G
     Indication: PRODUCT USED FOR UNKNOWN INDICATION
     Dosage: 30 GRAM. 8 SITES IN STOMACH
     Route: 058
     Dates: start: 20191108
  3. HIZENTRA [Suspect]
     Active Substance: HUMAN IMMUNOGLOBULIN G
     Dosage: UNK
     Route: 058
     Dates: start: 20191111

REACTIONS (7)
  - Infusion site pruritus [Recovered/Resolved]
  - Swelling [Unknown]
  - Infusion site swelling [Recovered/Resolved]
  - Infusion site warmth [Recovered/Resolved]
  - Infusion site erythema [Recovered/Resolved]
  - Erythema [Unknown]
  - Pruritus [Unknown]

NARRATIVE: CASE EVENT DATE: 20191108
